FAERS Safety Report 25106861 (Version 7)
Quarter: 2025Q2

REPORT INFORMATION
  Report Type: Report from Study
  Country: US (occurrence: US)
  Receive Date: 20250321
  Receipt Date: 20250502
  Transmission Date: 20250717
  Serious: Yes (Hospitalization, Other)
  Sender: IOVANCE BIOTHERAPEUTICS MANUFACTURING LLC
  Company Number: US-IOVANCE BIOTHERAPEUTICS INC.-IOV2025000022

PATIENT
  Age: 69 Year
  Sex: Male

DRUGS (4)
  1. ALDESLEUKIN [Suspect]
     Active Substance: ALDESLEUKIN
     Indication: Product used for unknown indication
     Route: 065
     Dates: start: 20250225, end: 20250228
  2. CYCLOPHOSPHAMIDE [Suspect]
     Active Substance: CYCLOPHOSPHAMIDE
     Indication: Product used for unknown indication
     Route: 065
     Dates: start: 20250219, end: 20250221
  3. FLUDARABINE [Suspect]
     Active Substance: FLUDARABINE PHOSPHATE
     Indication: Product used for unknown indication
     Route: 065
     Dates: start: 20250219, end: 20250222
  4. LIFILEUCEL [Suspect]
     Active Substance: LIFILEUCEL
     Indication: Non-small cell lung cancer stage IV
     Route: 065
     Dates: start: 20250224, end: 20250224

REACTIONS (11)
  - Tachypnoea [Unknown]
  - Cytomegalovirus infection reactivation [Recovered/Resolved]
  - Deep vein thrombosis [Unknown]
  - Cytopenia [Unknown]
  - Dyspnoea [Recovered/Resolved]
  - Pyrexia [Recovered/Resolved]
  - Retching [Unknown]
  - Nausea [Unknown]
  - Hypotension [Unknown]
  - Chills [Recovered/Resolved]
  - Cough [Recovered/Resolved]

NARRATIVE: CASE EVENT DATE: 20250311
